FAERS Safety Report 6249797-9 (Version None)
Quarter: 2009Q2

REPORT INFORMATION
  Report Type: 
  Country: None (occurrence: None)
  Receive Date: 20090629
  Receipt Date: 20090617
  Transmission Date: 20091009
  Serious: Yes (Hospitalization)
  Sender: FDA-Public Use
  Company Number: PHEH2009US06381

PATIENT
  Sex: Male

DRUGS (4)
  1. CLOZARIL [Suspect]
     Indication: SCHIZOAFFECTIVE DISORDER
     Dosage: 500 MG, UNK
     Dates: end: 20090616
  2. CLOZARIL [Suspect]
     Dosage: 400 MG, UNK
     Dates: start: 20090616, end: 20090617
  3. CLOZARIL [Suspect]
     Dosage: 200 MG, UNK
     Dates: start: 20090617
  4. PAXIL [Concomitant]
     Dosage: UNK, UNK

REACTIONS (5)
  - LUDWIG ANGINA [None]
  - NEUTROPHIL COUNT INCREASED [None]
  - SEPSIS [None]
  - TOOTH ABSCESS [None]
  - WHITE BLOOD CELL COUNT INCREASED [None]
